FAERS Safety Report 7249500-X (Version None)
Quarter: 2011Q1

REPORT INFORMATION
  Report Type: 
  Country: None (occurrence: None)
  Receive Date: 20110128
  Receipt Date: 20101221
  Transmission Date: 20110831
  Serious: No
  Sender: FDA-Public Use
  Company Number: US-BAYER-2010-009283

PATIENT
  Sex: Female
  Weight: 74.83 kg

DRUGS (6)
  1. ULTRAVIST 150 [Suspect]
     Dosage: 112 ML, ONCE
     Route: 042
     Dates: start: 20101221, end: 20101221
  2. LEVOTHYROXINE SODIUM [Concomitant]
  3. CELEXA [Concomitant]
  4. ABILIFY [Concomitant]
  5. READI-CAT [Concomitant]
  6. PRAZOSIN HCL [Concomitant]

REACTIONS (2)
  - URTICARIA [None]
  - SNEEZING [None]
